FAERS Safety Report 6853969-X (Version None)
Quarter: 2010Q3

REPORT INFORMATION
  Report Type: 
  Country: None (occurrence: None)
  Receive Date: 20100717
  Receipt Date: 20071223
  Transmission Date: 20110219
  Serious: No
  Sender: FDA-Public Use
  Company Number: US-PFIZER INC-2007108901

PATIENT
  Sex: Male
  Weight: 80.9 kg

DRUGS (6)
  1. CHANTIX [Suspect]
     Indication: SMOKING CESSATION THERAPY
     Route: 048
     Dates: start: 20071221
  2. LIPITOR [Concomitant]
  3. COZAAR [Concomitant]
  4. DILANTIN [Concomitant]
  5. METFORMIN HCL [Concomitant]
  6. LANTUS [Concomitant]

REACTIONS (2)
  - FLUSHING [None]
  - HYPOAESTHESIA [None]
